FAERS Safety Report 22350683 (Version 1)
Quarter: 2023Q2

REPORT INFORMATION
  Report Type: Spontaneous
  Country: ES (occurrence: ES)
  Receive Date: 20230522
  Receipt Date: 20230522
  Transmission Date: 20230722
  Serious: Yes (Other)
  Sender: FDA-Public Use
  Company Number: ES-BAYER-2023A070237

PATIENT
  Age: 70 Year
  Sex: Male

DRUGS (1)
  1. IOPROMIDE [Suspect]
     Active Substance: IOPROMIDE

REACTIONS (1)
  - Sialoadenitis [Recovered/Resolved]
